FAERS Safety Report 12432302 (Version 1)
Quarter: 2016Q2

REPORT INFORMATION
  Report Type: Spontaneous
  Country: US (occurrence: None)
  Receive Date: 20160602
  Receipt Date: 20160602
  Transmission Date: 20160815
  Serious: No
  Sender: FDA-Public Use
  Company Number: None

PATIENT
  Sex: Female

DRUGS (1)
  1. METFORMIN [Suspect]
     Active Substance: METFORMIN HYDROCHLORIDE

REACTIONS (7)
  - Vision blurred [None]
  - Gait disturbance [None]
  - Pain in extremity [None]
  - Depressed mood [None]
  - Weight decreased [None]
  - Breast mass [None]
  - Breast pain [None]
